FAERS Safety Report 8766882 (Version 3)
Quarter: 2012Q4

REPORT INFORMATION
  Report Type: 
  Country: US (occurrence: US)
  Receive Date: 20120904
  Receipt Date: 20121106
  Transmission Date: 20130627
  Serious: No
  Sender: FDA-Public Use
  Company Number: US-TEVA-356666USA

PATIENT
  Age: 67 Year
  Sex: Female
  Weight: 63.56 kg

DRUGS (5)
  1. AZILECT [Suspect]
     Indication: PARKINSON^S DISEASE
     Dosage: 1 Milligram Daily;
     Route: 048
     Dates: start: 201206, end: 20120822
  2. AZILECT [Suspect]
     Dosage: .5 Milligram Daily;
     Route: 048
  3. LEVOTHYROXINE [Concomitant]
     Indication: HYPOTHYROIDISM
     Dosage: .075 Milligram Daily;
     Route: 048
  4. MULTIVITAMIN [Concomitant]
     Route: 048
  5. SUPPLEMENTS [Concomitant]

REACTIONS (3)
  - Rash macular [Recovered/Resolved]
  - Urticaria [Recovering/Resolving]
  - Pruritus [Recovering/Resolving]
